FAERS Safety Report 4450440-X (Version None)
Quarter: 2004Q3

REPORT INFORMATION
  Report Type: 
  Country: None (occurrence: None)
  Receive Date: 20040802
  Receipt Date: 20040121
  Transmission Date: 20050211
  Serious: Yes (Other)
  Sender: FDA-Public Use
  Company Number: US-SHR-04-020038

PATIENT
  Age: 42 Year
  Sex: Female

DRUGS (1)
  1. MAGNEVIST [Suspect]
     Indication: NUCLEAR MAGNETIC RESONANCE IMAGING BRAIN
     Dosage: 20 M1, 1 DOSE, INTRAVENOUS
     Route: 042
     Dates: start: 20040107, end: 20040107

REACTIONS (2)
  - DYSPNOEA [None]
  - OROPHARYNGEAL SWELLING [None]
